FAERS Safety Report 8825304 (Version 1)
Quarter: 2012Q4

REPORT INFORMATION
  Report Type: 
  Country: US (occurrence: US)
  Receive Date: 20121004
  Receipt Date: 20121004
  Transmission Date: 20130627
  Serious: No
  Sender: FDA-Public Use
  Company Number: US-009507513-2012SP019668

PATIENT
  Age: 59 Year
  Sex: Male
  Weight: 10.89 kg

DRUGS (7)
  1. VICTRELIS [Suspect]
     Dosage: 800 mg, TID
     Route: 048
  2. VICTRELIS [Suspect]
     Dosage: UNK UNK, Unknown
     Route: 048
     Dates: start: 20120412
  3. REBETOL [Suspect]
     Dosage: 200 mg, UNK
     Route: 048
  4. PEGASYS [Suspect]
     Indication: PRODUCT USED FOR UNKNOWN INDICATION
     Dosage: 180 ?g, UNK
  5. FLOVENT HFA [Concomitant]
     Indication: PRODUCT USED FOR UNKNOWN INDICATION
     Dosage: FLOVENT HFA AER, 110 microgram
     Route: 065
  6. JANUVIA [Concomitant]
     Dosage: 25 mg, Unknown
     Route: 048
  7. TYLENOL [Concomitant]
     Indication: PRODUCT USED FOR UNKNOWN INDICATION
     Dosage: 325 mg, UNK

REACTIONS (6)
  - Mood swings [Not Recovered/Not Resolved]
  - Skin discolouration [Unknown]
  - Faeces hard [Recovered/Resolved]
  - Asthenia [Unknown]
  - Rash [Unknown]
  - Anaemia [Not Recovered/Not Resolved]
